FAERS Safety Report 5165442-8 (Version None)
Quarter: 2006Q4

REPORT INFORMATION
  Report Type: 
  Country: None (occurrence: None)
  Receive Date: 20061120
  Receipt Date: 20061114
  Transmission Date: 20070319
  Serious: No
  Sender: FDA-Public Use
  Company Number: 200610846

PATIENT
  Age: 50 Year
  Sex: Male
  Weight: 91.173 kg

DRUGS (2)
  1. IMMUNE GLOBULINE SUBCUTANEOUS (HUMAN)   (ZLB BEHRING) [Suspect]
     Indication: IMMUNODEFICIENCY COMMON VARIABLE
     Dosage: 3.3 G Q1W SC
     Route: 058
     Dates: start: 20061103
  2. IMMUNE GLOBULINE SUBCUTANEOUS (HUMAN)   (ZLB BEHRING) [Suspect]
     Indication: IMMUNODEFICIENCY COMMON VARIABLE
     Dosage: 5.2 G ONCE SC
     Route: 058
     Dates: start: 20061103

REACTIONS (1)
  - CAPILLARY LEAK SYNDROME [None]
